FAERS Safety Report 6399614-1 (Version None)
Quarter: 2009Q4

REPORT INFORMATION
  Report Type: 
  Country: None (occurrence: None)
  Receive Date: 20091009
  Receipt Date: 20091009
  Transmission Date: 20100525
  Serious: Yes (Other)
  Sender: FDA-Public Use
  Company Number: None

PATIENT
  Age: 61 Year
  Sex: Female
  Weight: 53.0709 kg

DRUGS (6)
  1. CARBOPLATIN [Suspect]
     Indication: BREAST CANCER
     Dosage: 380MG - Q3WK IVSS
     Dates: start: 20090313, end: 20091008
  2. ALOXI [Concomitant]
  3. DECADRON [Concomitant]
  4. ZOMETA [Concomitant]
  5. AVASTIN [Concomitant]
  6. TAXOTERE [Concomitant]

REACTIONS (6)
  - FEELING ABNORMAL [None]
  - FEELING HOT [None]
  - FLUSHING [None]
  - INFUSION RELATED REACTION [None]
  - NAUSEA [None]
  - SOMNOLENCE [None]
